FAERS Safety Report 5758182-5 (Version None)
Quarter: 2008Q2

REPORT INFORMATION
  Report Type: 
  Country: None (occurrence: None)
  Receive Date: 20080604
  Receipt Date: 20080528
  Transmission Date: 20081010
  Serious: Yes (Other)
  Sender: FDA-Public Use
  Company Number: US-JNJFOC-20080106563

PATIENT
  Sex: Female
  Weight: 34.02 kg

DRUGS (5)
  1. CONCERTA [Suspect]
     Route: 048
  2. CONCERTA [Suspect]
     Indication: ATTENTION DEFICIT/HYPERACTIVITY DISORDER
     Route: 048
  3. DILANTIN [Concomitant]
     Indication: CONVULSION
  4. PHENYTOIN [Concomitant]
     Indication: CONVULSION
  5. OXCARBAZEPINE [Concomitant]
     Indication: CONVULSION

REACTIONS (3)
  - GAIT DISTURBANCE [None]
  - MIGRAINE [None]
  - PARAESTHESIA [None]
